FAERS Safety Report 6670746-3 (Version None)
Quarter: 2010Q2

REPORT INFORMATION
  Report Type: 
  Country: None (occurrence: None)
  Receive Date: 20100407
  Receipt Date: 20100328
  Transmission Date: 20101027
  Serious: Yes (Other)
  Sender: FDA-Public Use
  Company Number: PHHY2010CA19303

PATIENT
  Sex: Male

DRUGS (2)
  1. TEGRETOL [Suspect]
     Indication: ALCOHOL WITHDRAWAL SYNDROME
  2. OXYCONTIN [Concomitant]
     Indication: PAIN

REACTIONS (1)
  - GRAND MAL CONVULSION [None]
